FAERS Safety Report 8736467 (Version 4)
Quarter: 2016Q4

REPORT INFORMATION
  Report Type: Report from Study
  Country: US (occurrence: US)
  Receive Date: 20120822
  Receipt Date: 20161007
  Transmission Date: 20170207
  Serious: Yes (Hospitalization, Other)
  Sender: FDA-Public Use
  Company Number: US-ROCHE-1101767

PATIENT
  Age: 54 Year
  Sex: Female
  Weight: 48 kg

DRUGS (4)
  1. VELIPARIB [Suspect]
     Active Substance: VELIPARIB
     Indication: OVARIAN EPITHELIAL CANCER
     Dosage: LAST DOSE PRIOR TO SAE WAS TAKEN ON 03/JUL/2012
     Route: 048
  2. BEVACIZUMAB [Suspect]
     Active Substance: BEVACIZUMAB
     Indication: OVARIAN EPITHELIAL CANCER
     Dosage: LAST DOSE PRIOR TO SAE WAS TAKEN ON 29/JUN/2012
     Route: 042
     Dates: start: 20120629
  3. PACLITAXEL. [Suspect]
     Active Substance: PACLITAXEL
     Indication: OVARIAN EPITHELIAL CANCER
     Dosage: LAST DOSE PRIOR TO SAE WAS TAKEN ON 06/JUL/2012. DAY 15 HELD DUE TO SBO.
     Route: 042
     Dates: start: 20120706
  4. CARBOPLATIN. [Suspect]
     Active Substance: CARBOPLATIN
     Indication: OVARIAN EPITHELIAL CANCER
     Dosage: AUC= 6 OVER 30 MINUTES ON DAY 1. LAST DOSE PRIOR TO SAE WAS TAKEN ON 29/MAY/2012
     Route: 042
     Dates: start: 20120529

REACTIONS (12)
  - Small intestinal obstruction [Unknown]
  - Vomiting [Unknown]
  - White blood cell count decreased [Unknown]
  - Hypokalaemia [Unknown]
  - Abdominal pain [Unknown]
  - Platelet count decreased [Unknown]
  - Hypomagnesaemia [Unknown]
  - Febrile neutropenia [Recovering/Resolving]
  - Anaemia [Unknown]
  - Hypoalbuminaemia [Unknown]
  - Nausea [Unknown]
  - Neutrophil count decreased [Unknown]

NARRATIVE: CASE EVENT DATE: 20120711
